FAERS Safety Report 11076427 (Version 3)
Quarter: 2019Q3

REPORT INFORMATION
  Report Type: Spontaneous
  Country: US (occurrence: US)
  Receive Date: 20150429
  Receipt Date: 20190820
  Transmission Date: 20191004
  Serious: Yes (Death, Hospitalization, Other)
  Sender: FDA-Public Use
  Company Number: US-MERCK-1504USA023708

PATIENT
  Sex: Female
  Weight: 63.95 kg

DRUGS (2)
  1. JANUVIA [Suspect]
     Active Substance: SITAGLIPTIN PHOSPHATE
     Dosage: 100 MILLIGRAM, QD
     Route: 048
     Dates: start: 20090312, end: 201003
  2. JANUVIA [Suspect]
     Active Substance: SITAGLIPTIN PHOSPHATE
     Dosage: 50 MILLIGRAM, QD
     Route: 048
     Dates: start: 20100311, end: 201205

REACTIONS (28)
  - Pyrexia [Unknown]
  - Neuropathy peripheral [Unknown]
  - Renal cyst [Unknown]
  - Lethargy [Unknown]
  - Renal failure [Unknown]
  - Cholangitis [Unknown]
  - Cholelithiasis [Not Recovered/Not Resolved]
  - Aortic arteriosclerosis [Unknown]
  - Pancreatic carcinoma [Fatal]
  - Pancreatitis acute [Recovered/Resolved]
  - Mental status changes [Unknown]
  - Neuropathy peripheral [Unknown]
  - Cholangiosarcoma [Unknown]
  - Bile duct stent insertion [Unknown]
  - Diverticulum intestinal [Unknown]
  - Diarrhoea [Unknown]
  - Infection [Unknown]
  - Confusional state [Unknown]
  - Pneumobilia [Unknown]
  - Gallbladder enlargement [Unknown]
  - Arteriosclerosis coronary artery [Unknown]
  - Hiatus hernia [Unknown]
  - Osteoarthritis [Unknown]
  - Dementia [Unknown]
  - Delirium [Unknown]
  - Hepatic cyst [Unknown]
  - Diarrhoea [Recovered/Resolved]
  - Spinal osteoarthritis [Unknown]

NARRATIVE: CASE EVENT DATE: 201110
